FAERS Safety Report 4281750-7 (Version None)
Quarter: 2004Q1

REPORT INFORMATION
  Report Type: 
  Country: None (occurrence: None)
  Receive Date: 20040112
  Receipt Date: 20030916
  Transmission Date: 20041129
  Serious: No
  Sender: FDA-Public Use
  Company Number: PHEH2003US08489

PATIENT
  Age: 69 Year
  Sex: Female

DRUGS (4)
  1. ELIDEL [Suspect]
     Indication: ECZEMA
     Dosage: BID, TOPICAL
     Route: 061
     Dates: start: 20030728, end: 20030801
  2. LIPITOR [Concomitant]
  3. FOSAMAX [Concomitant]
  4. FORADIL [Concomitant]

REACTIONS (3)
  - APPLICATION SITE DRYNESS [None]
  - DERMATITIS EXFOLIATIVE [None]
  - SKIN FISSURES [None]
